FAERS Safety Report 11852993 (Version 1)
Quarter: 2015Q4

REPORT INFORMATION
  Report Type: Report from Study
  Country: CO (occurrence: CO)
  Receive Date: 20151218
  Receipt Date: 20151218
  Transmission Date: 20160305
  Serious: Yes (Life-Threatening)
  Sender: FDA-Public Use
  Company Number: PHHY2015CO165467

PATIENT
  Age: 70 Year
  Sex: Male

DRUGS (1)
  1. SIGNIFOR [Suspect]
     Active Substance: PASIREOTIDE
     Indication: CUSHING^S SYNDROME
     Dosage: 0.3 MG, UNK
     Route: 030
     Dates: start: 2015, end: 2015

REACTIONS (4)
  - Diabetes mellitus [Recovering/Resolving]
  - Incorrect route of drug administration [Unknown]
  - Product use issue [Unknown]
  - Diabetes mellitus inadequate control [Recovering/Resolving]

NARRATIVE: CASE EVENT DATE: 2015
